FAERS Safety Report 15807544 (Version 1)
Quarter: 2019Q1

REPORT INFORMATION
  Report Type: Spontaneous
  Country: IT (occurrence: IT)
  Receive Date: 20190110
  Receipt Date: 20190110
  Transmission Date: 20190417
  Serious: Yes (Other)
  Sender: FDA-Public Use
  Company Number: PHHY2018IT200381

PATIENT

DRUGS (1)
  1. GILENYA [Suspect]
     Active Substance: FINGOLIMOD HYDROCHLORIDE
     Indication: RELAPSING-REMITTING MULTIPLE SCLEROSIS
     Dosage: 240 DOSES
     Route: 048

REACTIONS (4)
  - Hepatic enzyme increased [Unknown]
  - Oedema peripheral [Unknown]
  - Influenza [Unknown]
  - Headache [Unknown]
